FAERS Safety Report 25191046 (Version 1)
Quarter: 2025Q2

REPORT INFORMATION
  Report Type: Report from Study
  Country: FR (occurrence: FR)
  Receive Date: 20250411
  Receipt Date: 20250411
  Transmission Date: 20250716
  Serious: Yes (Death)
  Sender: MYLAN
  Company Number: FR-BAYER-2025A032069

PATIENT
  Age: 66 Year
  Sex: Male

DRUGS (12)
  1. SORAFENIB [Suspect]
     Active Substance: SORAFENIB
     Indication: Product used for unknown indication
  2. SORAFENIB [Suspect]
     Active Substance: SORAFENIB
     Route: 065
  3. SORAFENIB [Suspect]
     Active Substance: SORAFENIB
     Route: 065
  4. SORAFENIB [Suspect]
     Active Substance: SORAFENIB
  5. REGORAFENIB [Suspect]
     Active Substance: REGORAFENIB
     Indication: Hepatocellular carcinoma
     Dosage: 120 MILLIGRAM, Q3W
     Dates: start: 20241007, end: 20241029
  6. REGORAFENIB [Suspect]
     Active Substance: REGORAFENIB
     Dosage: 120 MILLIGRAM, Q3W
     Dates: start: 20241007, end: 20241029
  7. REGORAFENIB [Suspect]
     Active Substance: REGORAFENIB
     Dosage: 120 MILLIGRAM, Q3W
     Route: 065
     Dates: start: 20241007, end: 20241029
  8. REGORAFENIB [Suspect]
     Active Substance: REGORAFENIB
     Dosage: 120 MILLIGRAM, Q3W
     Route: 065
     Dates: start: 20241007, end: 20241029
  9. REGORAFENIB [Suspect]
     Active Substance: REGORAFENIB
     Dosage: 80 MILLIGRAM, Q3W
     Dates: start: 20241209, end: 20241223
  10. REGORAFENIB [Suspect]
     Active Substance: REGORAFENIB
     Dosage: 80 MILLIGRAM, Q3W
     Dates: start: 20241209, end: 20241223
  11. REGORAFENIB [Suspect]
     Active Substance: REGORAFENIB
     Dosage: 80 MILLIGRAM, Q3W
     Route: 065
     Dates: start: 20241209, end: 20241223
  12. REGORAFENIB [Suspect]
     Active Substance: REGORAFENIB
     Dosage: 80 MILLIGRAM, Q3W
     Route: 065
     Dates: start: 20241209, end: 20241223

REACTIONS (1)
  - Hepatocellular carcinoma [Fatal]
